FAERS Safety Report 24041024 (Version 2)
Quarter: 2024Q3

REPORT INFORMATION
  Report Type: Spontaneous
  Country: US (occurrence: US)
  Receive Date: 20240702
  Receipt Date: 20240822
  Transmission Date: 20241017
  Serious: Yes (Hospitalization, Other)
  Sender: BRISTOL MYERS SQUIBB
  Company Number: US-BRISTOL-MYERS SQUIBB COMPANY-2024-105079

PATIENT
  Age: 80 Year
  Sex: Female
  Weight: 76.2 kg

DRUGS (1)
  1. POMALYST [Suspect]
     Active Substance: POMALIDOMIDE
     Indication: Plasma cell myeloma
     Dosage: 4MG CAPSULE DAILY FOR 21 DAYS ON THEN 7 DAYS OFF
     Route: 048

REACTIONS (4)
  - Hypotension [Recovering/Resolving]
  - Asthenia [Unknown]
  - Joint swelling [Unknown]
  - Cardiac disorder [Unknown]
